FAERS Safety Report 21415295 (Version 2)
Quarter: 2022Q4

REPORT INFORMATION
  Report Type: Other
  Country: DE (occurrence: DE)
  Receive Date: 20221006
  Receipt Date: 20221111
  Transmission Date: 20230113
  Serious: Yes (Death, Life-Threatening, Hospitalization)
  Sender: FDA-Public Use
  Company Number: DE-MACLEODS PHARMACEUTICALS US LTD-MAC2022037555

PATIENT

DRUGS (4)
  1. SILDENAFIL [Suspect]
     Active Substance: SILDENAFIL
     Indication: Product used for unknown indication
     Dosage: 100 MILLIGRAM
     Route: 065
  2. PRADAXA [Concomitant]
     Active Substance: DABIGATRAN ETEXILATE MESYLATE
     Indication: Product used for unknown indication
     Dosage: 150 MILLIGRAM
     Route: 065
  3. ENALAPRIL [Concomitant]
     Active Substance: ENALAPRIL
     Indication: Product used for unknown indication
     Dosage: 20 MILLIGRAM
     Route: 065
  4. BISOPROLOL [Concomitant]
     Active Substance: BISOPROLOL
     Indication: Product used for unknown indication
     Dosage: 5 MILLIGRAM
     Route: 065

REACTIONS (19)
  - Death [Fatal]
  - Paresis [Unknown]
  - Depressed level of consciousness [Unknown]
  - General physical health deterioration [Unknown]
  - Electrocardiogram abnormal [Unknown]
  - Hemiparesis [Unknown]
  - Haematochezia [Unknown]
  - Injury [Unknown]
  - Haematemesis [Unknown]
  - Gaze palsy [Unknown]
  - Wound [Unknown]
  - Wound [Unknown]
  - Hyperglycaemia [Unknown]
  - Aphasia [Unknown]
  - Pyrexia [Unknown]
  - Atrial fibrillation [Unknown]
  - Tachycardia [Unknown]
  - Vomiting [Unknown]
  - Hypertension [Unknown]

NARRATIVE: CASE EVENT DATE: 20210720
